FAERS Safety Report 7219898-7 (Version None)
Quarter: 2011Q1

REPORT INFORMATION
  Report Type: 
  Country: None (occurrence: None)
  Receive Date: 20110111
  Receipt Date: 20110103
  Transmission Date: 20110831
  Serious: Yes (Other)
  Sender: FDA-Public Use
  Company Number: PHHY2011ES00443

PATIENT
  Age: 77 Year
  Sex: Male

DRUGS (2)
  1. CORTICOSTEROIDS [Concomitant]
     Indication: PROSTATE CANCER METASTATIC
     Dosage: UNK
     Dates: start: 20090901
  2. ZOMETA [Suspect]
     Indication: PROSTATE CANCER METASTATIC
     Dosage: UNK
     Route: 042
     Dates: start: 20090401

REACTIONS (5)
  - GINGIVAL ULCERATION [None]
  - PAIN IN JAW [None]
  - BONE DISORDER [None]
  - PURULENT DISCHARGE [None]
  - OSTEONECROSIS OF JAW [None]
